FAERS Safety Report 10301940 (Version 2)
Quarter: 2014Q3

REPORT INFORMATION
  Report Type: Spontaneous
  Country: BR (occurrence: BR)
  Receive Date: 20140714
  Receipt Date: 20140714
  Transmission Date: 20150326
  Serious: Yes (Other)
  Sender: FDA-Public Use
  Company Number: PHHY2014BR001589

PATIENT
  Sex: Male

DRUGS (3)
  1. TRILEPTAL [Suspect]
     Active Substance: OXCARBAZEPINE
     Indication: EPILEPSY
     Dosage: 4 ML, BID
     Route: 048
     Dates: start: 201310
  2. TRILEPTAL [Suspect]
     Active Substance: OXCARBAZEPINE
     Dosage: 4 ML, BID
     Route: 048
     Dates: start: 20140101
  3. TRILEPTAL [Suspect]
     Active Substance: OXCARBAZEPINE
     Dosage: 5 ML, UNK
     Dates: start: 20140103

REACTIONS (7)
  - Diarrhoea [Recovered/Resolved]
  - Malaise [Unknown]
  - Pyrexia [Not Recovered/Not Resolved]
  - Abdominal pain [Recovered/Resolved]
  - Poisoning [Unknown]
  - Vomiting [Unknown]
  - Dizziness [Unknown]

NARRATIVE: CASE EVENT DATE: 20140103
